FAERS Safety Report 9111757 (Version 1)
Quarter: 2013Q1

REPORT INFORMATION
  Report Type: Spontaneous
  Country: US (occurrence: US)
  Receive Date: 20130219
  Receipt Date: 20130219
  Transmission Date: 20140127
  Serious: Yes (Other)
  Sender: FDA-Public Use
  Company Number: US-BRISTOL-MYERS SQUIBB COMPANY-16685133

PATIENT
  Age: 57 Year
  Sex: Female
  Weight: 122.45 kg

DRUGS (18)
  1. ORENCIA [Suspect]
     Indication: RHEUMATOID ARTHRITIS
     Dosage: LAST INF ON 08JUN12
     Route: 042
  2. NUVIGIL [Concomitant]
     Indication: SLEEP DISORDER
  3. SULFASALAZINE [Concomitant]
  4. BENAZEPRIL HCL [Concomitant]
  5. LANTUS [Concomitant]
  6. GABAPENTIN [Concomitant]
  7. METHOTREXATE [Concomitant]
  8. SPIRONOLACTONE [Concomitant]
  9. PAXIL [Concomitant]
  10. NEXIUM [Concomitant]
  11. VESICARE [Concomitant]
  12. NOVOLOG [Concomitant]
  13. HYDROCODONE [Concomitant]
  14. FOLIC ACID [Concomitant]
  15. B12 [Concomitant]
     Dosage: INJ
  16. AZELASTINE HCL [Concomitant]
     Dosage: ASTEPROBURMEX
  17. WARFARIN [Concomitant]
  18. LEVOTHYROXINE [Concomitant]

REACTIONS (2)
  - Malignant melanoma [Not Recovered/Not Resolved]
  - Fatigue [Unknown]
